FAERS Safety Report 7602224-9 (Version None)
Quarter: 2011Q3

REPORT INFORMATION
  Report Type: 
  Country: None (occurrence: None)
  Receive Date: 20110711
  Receipt Date: 20110705
  Transmission Date: 20111222
  Serious: Yes (Other)
  Sender: FDA-Public Use
  Company Number: AT-ABBOTT-11P-009-0710778-00

PATIENT
  Sex: Female
  Weight: 83 kg

DRUGS (5)
  1. BUDOSAN [Concomitant]
     Indication: CROHN'S DISEASE
     Dosage: FREQUENCY: 1-O-D
     Dates: start: 20100901
  2. MESALAMINE [Concomitant]
     Indication: CROHN'S DISEASE
     Dosage: FREQUENCY: 2-2-2
     Dates: start: 20101014
  3. HUMIRA [Suspect]
     Indication: CROHN'S DISEASE
     Route: 058
     Dates: start: 20110104, end: 20110303
  4. HUMIRA [Suspect]
     Dates: start: 20110505
  5. AKTIFERRIN [Concomitant]
     Indication: CROHN'S DISEASE
     Dosage: FREQUENCY: 1-O-1
     Dates: start: 20101014

REACTIONS (4)
  - VERTIGO [None]
  - CARDIAC DISORDER [None]
  - DYSPNOEA [None]
  - VENTRICULAR TACHYCARDIA [None]
